FAERS Safety Report 5236043-8 (Version None)
Quarter: 2007Q1

REPORT INFORMATION
  Report Type: 
  Country: None (occurrence: None)
  Receive Date: 20070212
  Receipt Date: 20070131
  Transmission Date: 20070707
  Serious: Yes (Hospitalization)
  Sender: FDA-Public Use
  Company Number: US-ELI_LILLY_AND_COMPANY-US200610002818

PATIENT
  Age: 78 Year
  Sex: Female
  Weight: 61.224 kg

DRUGS (1)
  1. FORTEO [Suspect]
     Indication: OSTEOPOROSIS
     Dosage: UNK, UNK
     Dates: start: 20050201

REACTIONS (4)
  - GASTROINTESTINAL DISORDER [None]
  - INFECTION PARASITIC [None]
  - IRRITABLE BOWEL SYNDROME [None]
  - VERTIGO [None]
